FAERS Safety Report 4447092-1 (Version None)
Quarter: 2004Q3

REPORT INFORMATION
  Report Type: 
  Country: None (occurrence: None)
  Receive Date: 20040813
  Receipt Date: 20040517
  Transmission Date: 20050211
  Serious: No
  Sender: FDA-Public Use
  Company Number: S04-USA-03586-01

PATIENT
  Age: 78 Year
  Sex: Male

DRUGS (8)
  1. NAMENDA [Suspect]
     Indication: DEMENTIA
     Dosage: 5 MG QD PO
     Route: 048
     Dates: start: 20040516
  2. CARBIDOPA AND LEVODOPA [Concomitant]
  3. PROSCAR [Concomitant]
  4. ACCUPRIL [Concomitant]
  5. LASIX [Concomitant]
  6. EFFEXOR [Concomitant]
  7. CELEBREX [Concomitant]
  8. VITAMIN C [Concomitant]

REACTIONS (4)
  - CHROMATURIA [None]
  - DYSKINESIA [None]
  - LETHARGY [None]
  - URINE OUTPUT DECREASED [None]
